FAERS Safety Report 5115876-2 (Version None)
Quarter: 2006Q3

REPORT INFORMATION
  Report Type: 
  Country: None (occurrence: None)
  Receive Date: 20060926
  Receipt Date: 20060926
  Transmission Date: 20061208
  Serious: Yes (Disabling)
  Sender: FDA-Public Use
  Company Number: None

PATIENT
  Age: 82 Year
  Sex: Female
  Weight: 68.0396 kg

DRUGS (2)
  1. STARLIX [Suspect]
     Indication: BLOOD GLUCOSE INCREASED
     Dosage: 1/2 TABLET  ONCE DAILY  ORALLY
     Route: 048
     Dates: start: 20060601, end: 20060701
  2. VERAPAMIL [Suspect]
     Dosage: 1 TABLET  AT BEDTIME  ORALLY
     Route: 048
     Dates: start: 20060523, end: 20060606

REACTIONS (2)
  - BLOOD GLUCOSE INCREASED [None]
  - MACULAR DEGENERATION [None]
